FAERS Safety Report 9219124 (Version 2)
Quarter: 2013Q2

REPORT INFORMATION
  Report Type: Spontaneous
  Country: US (occurrence: US)
  Receive Date: 20130409
  Receipt Date: 20130514
  Transmission Date: 20140414
  Serious: Yes (Hospitalization)
  Sender: FDA-Public Use
  Company Number: US-BAYER-2013-044521

PATIENT
  Age: 39 Year
  Sex: Female
  Weight: 53.97 kg

DRUGS (4)
  1. YASMIN [Suspect]
     Dosage: UNK
     Dates: start: 2011, end: 2012
  2. OCELLA [Suspect]
     Dosage: UNK
     Dates: start: 2011, end: 2012
  3. YAZ [Suspect]
     Dosage: UNK
     Dates: start: 2011, end: 2012
  4. AZELEX [Concomitant]
     Dosage: 20 UNK, UNK

REACTIONS (8)
  - Pulmonary embolism [None]
  - Injury [None]
  - Pain [None]
  - Emotional distress [None]
  - Abdominal pain [None]
  - General physical health deterioration [None]
  - Anxiety [None]
  - Pain [None]
